FAERS Safety Report 18821469 (Version 1)
Quarter: 2021Q1

REPORT INFORMATION
  Report Type: Spontaneous
  Country: US (occurrence: US)
  Receive Date: 20210202
  Receipt Date: 20210202
  Transmission Date: 20210419
  Serious: Yes (Death)
  Sender: FDA-Public Use
  Company Number: None

PATIENT
  Age: 84 Year
  Sex: Female

DRUGS (8)
  1. COSENTYX [Suspect]
     Active Substance: SECUKINUMAB
     Indication: PSORIASIS
     Dosage: ?          OTHER FREQUENCY:ONCE A MONTH;?
     Route: 058
     Dates: start: 20190923, end: 20210123
  2. TORSEMIDE. [Concomitant]
     Active Substance: TORSEMIDE
  3. ALCOHOL. [Concomitant]
     Active Substance: ALCOHOL
  4. ROSUVASTATIN. [Concomitant]
     Active Substance: ROSUVASTATIN
  5. TRAMADOL. [Concomitant]
     Active Substance: TRAMADOL
  6. ALBUTEROL. [Concomitant]
     Active Substance: ALBUTEROL
  7. DICLOFENAC [Concomitant]
     Active Substance: DICLOFENAC
  8. ISOSORB MONO [Concomitant]
     Active Substance: ISOSORBIDE MONONITRATE

REACTIONS (1)
  - Death [None]

NARRATIVE: CASE EVENT DATE: 20210123
